FAERS Safety Report 8451107-3 (Version None)
Quarter: 2012Q2

REPORT INFORMATION
  Report Type: 
  Country: None (occurrence: None)
  Receive Date: 20120620
  Receipt Date: 20120611
  Transmission Date: 20120825
  Serious: No
  Sender: FDA-Public Use
  Company Number: CA-JNJFOC-20120111419

PATIENT
  Sex: Male
  Weight: 40.82 kg

DRUGS (3)
  1. STELARA [Suspect]
     Indication: PSORIASIS
     Route: 058
     Dates: start: 20111201, end: 20111201
  2. CRESTOR [Concomitant]
  3. MICARDIS [Concomitant]

REACTIONS (2)
  - LOCALISED INFECTION [None]
  - DIABETES MELLITUS INADEQUATE CONTROL [None]
